FAERS Safety Report 10977821 (Version 1)
Quarter: 2015Q1

REPORT INFORMATION
  Report Type: Spontaneous
  Country: None (occurrence: None)
  Receive Date: 20150226
  Receipt Date: 20150226
  Transmission Date: 20150721
  Serious: No
  Sender: FDA-Public Use
  Company Number: TPA2009A01778

PATIENT
  Age: 43 Year
  Sex: Female
  Weight: 79.3 kg

DRUGS (7)
  1. PREDNISONE. [Concomitant]
     Active Substance: PREDNISONE
  2. UNKNOWN STERIOD (ALL OTHER THERAPEUTIC PRODUCTS) [Concomitant]
  3. AMBIEN [Concomitant]
     Active Substance: ZOLPIDEM TARTRATE
  4. PLAQUENIL [Concomitant]
     Active Substance: HYDROXYCHLOROQUINE SULFATE
  5. UNKNOWN MIGRAINE MEDICATION (ALL OTHER THERAPEUTIC PRODUCTS) [Concomitant]
  6. COLCHICINE. [Concomitant]
     Active Substance: COLCHICINE
  7. ULORIC [Suspect]
     Active Substance: FEBUXOSTAT
     Indication: GOUT
     Route: 048
     Dates: start: 20090624, end: 200906

REACTIONS (3)
  - Burning sensation [None]
  - Sensory disturbance [None]
  - Gout [None]

NARRATIVE: CASE EVENT DATE: 200906
